APPROVED DRUG PRODUCT: DIAZEPAM
Active Ingredient: DIAZEPAM
Strength: 10MG/2ML (5MG/ML)
Dosage Form/Route: INJECTABLE;INJECTION
Application: A217178 | Product #001 | TE Code: AP
Applicant: LONG GROVE PHARMACEUTICALS LLC
Approved: Dec 31, 2024 | RLD: No | RS: No | Type: RX